FAERS Safety Report 12061312 (Version 1)
Quarter: 2016Q1

REPORT INFORMATION
  Report Type: Spontaneous
  Country: US (occurrence: US)
  Receive Date: 20160210
  Receipt Date: 20160210
  Transmission Date: 20160526
  Serious: Yes (Other)
  Sender: FDA-Public Use
  Company Number: US-LUNDBECK-DKLU2009550

PATIENT
  Age: 1 Month
  Sex: Female

DRUGS (3)
  1. SABRIL [Suspect]
     Active Substance: VIGABATRIN
     Route: 065
     Dates: start: 20160126
  2. SABRIL [Suspect]
     Active Substance: VIGABATRIN
     Indication: BRAIN MALFORMATION
     Route: 065
     Dates: start: 20160115, end: 20160126
  3. KEPPRA [Concomitant]
     Active Substance: LEVETIRACETAM
     Indication: PRODUCT USED FOR UNKNOWN INDICATION
     Route: 065

REACTIONS (2)
  - Lethargy [Unknown]
  - Aspiration [Unknown]

NARRATIVE: CASE EVENT DATE: 20160126
